FAERS Safety Report 4401573-5 (Version None)
Quarter: 2004Q3

REPORT INFORMATION
  Report Type: 
  Country: None (occurrence: None)
  Receive Date: 20040719
  Receipt Date: 20040707
  Transmission Date: 20050211
  Serious: Yes (Life-Threatening, Hospitalization, Disabling)
  Sender: FDA-Public Use
  Company Number: US-MERCK-0407USA00661

PATIENT
  Age: 74 Year
  Sex: Female

DRUGS (5)
  1. FOSAMAX [Suspect]
     Indication: OSTEOPOROSIS
     Route: 048
     Dates: start: 20010801
  2. LIPITOR [Concomitant]
     Route: 065
  3. LEVOXYL [Concomitant]
     Route: 065
  4. ADALAT [Concomitant]
     Route: 065
  5. ZOLOFT [Concomitant]
     Route: 065

REACTIONS (1)
  - BONE SARCOMA [None]
